FAERS Safety Report 19461272 (Version 1)
Quarter: 2021Q2

REPORT INFORMATION
  Report Type: Spontaneous
  Country: DE (occurrence: DE)
  Receive Date: 20210625
  Receipt Date: 20210625
  Transmission Date: 20210717
  Serious: Yes (Other)
  Sender: FDA-Public Use
  Company Number: DE-PFIZER INC-2021707650

PATIENT
  Sex: Male

DRUGS (1)
  1. CYTOTEC [Suspect]
     Active Substance: MISOPROSTOL
     Indication: LABOUR INDUCTION
     Dosage: 1 DF, SINGLE
     Route: 064
     Dates: start: 20120901, end: 20120901

REACTIONS (4)
  - Developmental delay [Not Recovered/Not Resolved]
  - Intellectual disability [Not Recovered/Not Resolved]
  - Foetal exposure during delivery [Unknown]
  - Autism spectrum disorder [Not Recovered/Not Resolved]

NARRATIVE: CASE EVENT DATE: 20120901
